FAERS Safety Report 21474609 (Version 1)
Quarter: 2022Q4

REPORT INFORMATION
  Report Type: Spontaneous
  Country: US (occurrence: None)
  Receive Date: 20221017
  Receipt Date: 20221017
  Transmission Date: 20230112
  Serious: Yes (Hospitalization)
  Sender: FDA-Public Use
  Company Number: None

PATIENT
  Sex: Female

DRUGS (1)
  1. CAPECITABINE [Suspect]
     Active Substance: CAPECITABINE
     Dosage: 1500MG BID ORAL?
     Route: 048

REACTIONS (6)
  - Memory impairment [None]
  - Dysphagia [None]
  - Dyspnoea [None]
  - Fatigue [None]
  - Asthenia [None]
  - Recurrent cancer [None]
